FAERS Safety Report 6765866-9 (Version None)
Quarter: 2010Q2

REPORT INFORMATION
  Report Type: 
  Country: None (occurrence: None)
  Receive Date: 20100609
  Receipt Date: 20100528
  Transmission Date: 20101027
  Serious: Yes (Hospitalization, Disabling)
  Sender: FDA-Public Use
  Company Number: US-GDP-10407959

PATIENT
  Sex: Female

DRUGS (6)
  1. ORACEA [Suspect]
     Indication: ROSACEA
     Dosage: (40 MG QD ORAL)
     Route: 048
     Dates: start: 20090901, end: 20100125
  2. ALTACE [Concomitant]
  3. OMEPRAZOLE [Concomitant]
  4. HYDROCHLOROTHIAZIDE [Concomitant]
  5. ZOCOR [Concomitant]
  6. ZETIA [Concomitant]

REACTIONS (4)
  - BLOOD PRESSURE DECREASED [None]
  - DIZZINESS [None]
  - HAEMOLYTIC ANAEMIA [None]
  - INFLUENZA LIKE ILLNESS [None]
